FAERS Safety Report 7770368-7 (Version None)
Quarter: 2011Q3

REPORT INFORMATION
  Report Type: 
  Country: None (occurrence: None)
  Receive Date: 20110922
  Receipt Date: 20110620
  Transmission Date: 20111222
  Serious: No
  Sender: FDA-Public Use
  Company Number: US-ASTRAZENECA-2011SE37442

PATIENT
  Age: 40 Year
  Sex: Male
  Weight: 79.4 kg

DRUGS (2)
  1. DEPAKOTE [Concomitant]
  2. SEROQUEL [Suspect]
     Indication: BIPOLAR DISORDER
     Route: 048
     Dates: start: 20110301

REACTIONS (2)
  - URTICARIA [None]
  - SKIN BURNING SENSATION [None]
